FAERS Safety Report 25012716 (Version 1)
Quarter: 2025Q1

REPORT INFORMATION
  Report Type: Report from Study
  Country: GB (occurrence: GB)
  Receive Date: 20250226
  Receipt Date: 20250226
  Transmission Date: 20250408
  Serious: Yes (Hospitalization)
  Sender: ABBVIE
  Company Number: GB-ABBVIE-6148062

PATIENT
  Sex: Female

DRUGS (1)
  1. RINVOQ [Suspect]
     Active Substance: UPADACITINIB
     Indication: Ankylosing spondylitis
     Dosage: 15MG MODIFIED-RELEASE TABLETS, 28 TABLET 4 X 7 TABLETS
     Route: 048

REACTIONS (2)
  - Malaise [Unknown]
  - Norovirus infection [Unknown]
